FAERS Safety Report 7258647-3 (Version None)
Quarter: 2011Q1

REPORT INFORMATION
  Report Type: 
  Country: None (occurrence: None)
  Receive Date: 20110129
  Receipt Date: 20100814
  Transmission Date: 20110831
  Serious: No
  Sender: FDA-Public Use
  Company Number: US-ABBOTT-09P-163-0614079-00

PATIENT
  Sex: Male
  Weight: 120.31 kg

DRUGS (2)
  1. HUMIRA [Suspect]
     Indication: PSORIATIC ARTHROPATHY
     Dates: start: 20091009
  2. HUMIRA [Suspect]
     Indication: PSORIASIS

REACTIONS (6)
  - PSORIASIS [None]
  - SKIN HAEMORRHAGE [None]
  - DRUG INEFFECTIVE [None]
  - SKIN FISSURES [None]
  - UPPER RESPIRATORY TRACT INFECTION [None]
  - JOINT CREPITATION [None]
